FAERS Safety Report 24434009 (Version 4)
Quarter: 2025Q3

REPORT INFORMATION
  Report Type: Report from Study
  Country: US (occurrence: US)
  Receive Date: 20241014
  Receipt Date: 20250908
  Transmission Date: 20251020
  Serious: Yes (Other)
  Sender: JAZZ
  Company Number: US-JAZZ-2022-US-002320

PATIENT
  Age: 36 Year
  Sex: Female

DRUGS (34)
  1. XYREM [Suspect]
     Active Substance: SODIUM OXYBATE
     Indication: Narcolepsy
     Dosage: 2.25 GRAM, BID
     Dates: start: 201512, end: 201512
  2. XYREM [Suspect]
     Active Substance: SODIUM OXYBATE
     Indication: Cataplexy
  3. XYREM [Suspect]
     Active Substance: SODIUM OXYBATE
     Indication: Somnolence
     Dosage: 4.5 GRAM, BID
     Dates: start: 20170224
  4. XYREM [Suspect]
     Active Substance: SODIUM OXYBATE
     Dosage: 4 GRAM, BID
     Dates: start: 202112
  5. XYREM [Suspect]
     Active Substance: SODIUM OXYBATE
  6. KISQALI FEMARA CO-PACK [Suspect]
     Active Substance: LETROZOLE\RIBOCICLIB SUCCINATE
     Indication: Surgery
  7. RITALIN [Concomitant]
     Active Substance: METHYLPHENIDATE HYDROCHLORIDE
     Indication: Product used for unknown indication
  8. RITALIN [Concomitant]
     Active Substance: METHYLPHENIDATE HYDROCHLORIDE
  9. ADDERALL [Concomitant]
     Active Substance: AMPHETAMINE ASPARTATE\AMPHETAMINE SULFATE\DEXTROAMPHETAMINE SACCHARATE\DEXTROAMPHETAMINE SULFATE
     Indication: Product used for unknown indication
     Dosage: UNK, QD
     Dates: start: 20160701
  10. ADDERALL [Concomitant]
     Active Substance: AMPHETAMINE ASPARTATE\AMPHETAMINE SULFATE\DEXTROAMPHETAMINE SACCHARATE\DEXTROAMPHETAMINE SULFATE
  11. MELOXICAM [Concomitant]
     Active Substance: MELOXICAM
     Indication: Product used for unknown indication
  12. DICLOFENAC DIETHYLAMINE [Concomitant]
     Active Substance: DICLOFENAC DIETHYLAMINE
     Indication: Product used for unknown indication
  13. CYMBALTA [Concomitant]
     Active Substance: DULOXETINE HYDROCHLORIDE
     Indication: Product used for unknown indication
  14. CYMBALTA [Concomitant]
     Active Substance: DULOXETINE HYDROCHLORIDE
  15. AZELASTINE [Concomitant]
     Active Substance: AZELASTINE
     Indication: Product used for unknown indication
  16. AZELASTINE [Concomitant]
     Active Substance: AZELASTINE
  17. SINGULAIR [Concomitant]
     Active Substance: MONTELUKAST SODIUM
     Indication: Product used for unknown indication
  18. IMITREX [Concomitant]
     Active Substance: SUMATRIPTAN SUCCINATE
     Indication: Product used for unknown indication
  19. IMITREX [Concomitant]
     Active Substance: SUMATRIPTAN SUCCINATE
  20. ASPIRIN [Concomitant]
     Active Substance: ASPIRIN
     Indication: Product used for unknown indication
  21. NAPROXEN [Concomitant]
     Active Substance: NAPROXEN
     Indication: Product used for unknown indication
  22. CEFIXIME [Concomitant]
     Active Substance: CEFIXIME
     Dosage: UNK UNK, QD
  23. GABAPENTIN [Concomitant]
     Active Substance: GABAPENTIN
     Dosage: 600 MILLIGRAM, BID
  24. PATADAY [Concomitant]
     Active Substance: OLOPATADINE HYDROCHLORIDE
  25. TOPAMAX [Concomitant]
     Active Substance: TOPIRAMATE
  26. TYLENOL EXTRA STRENGTH [Concomitant]
     Active Substance: ACETAMINOPHEN
  27. BIOTIN [Concomitant]
     Active Substance: BIOTIN
     Indication: Alopecia
  28. LETROZOLE [Concomitant]
     Active Substance: LETROZOLE
     Indication: Product used for unknown indication
  29. VITAMIN D+K [Concomitant]
     Indication: Product used for unknown indication
  30. CALCIUM ACETATE [Concomitant]
     Active Substance: CALCIUM ACETATE
  31. TRULANCE [Concomitant]
     Active Substance: PLECANATIDE
  32. HOMOCYSTEINE FORMULA [Concomitant]
     Indication: Blood folate
  33. NALTREXONE [Concomitant]
     Active Substance: NALTREXONE
  34. OXYCODONE AND ACETAMINOPHEN [Concomitant]
     Active Substance: ACETAMINOPHEN\OXYCODONE HYDROCHLORIDE

REACTIONS (9)
  - Breast cancer [Unknown]
  - Nephrolithiasis [Unknown]
  - Post procedural pneumonia [Unknown]
  - COVID-19 [Unknown]
  - Orthognathic surgery [Unknown]
  - Epistaxis [Unknown]
  - Drug hypersensitivity [Unknown]
  - Intentional dose omission [Unknown]
  - Product administration interrupted [Unknown]

NARRATIVE: CASE EVENT DATE: 20220601
